FAERS Safety Report 7404988-6 (Version None)
Quarter: 2011Q1

REPORT INFORMATION
  Report Type: 
  Country: None (occurrence: None)
  Receive Date: 20110331
  Receipt Date: 20110324
  Transmission Date: 20110831
  Serious: Yes (Other)
  Sender: FDA-Public Use
  Company Number: DSA_45277_2011

PATIENT
  Sex: Female

DRUGS (2)
  1. XENAZINE [Suspect]
     Indication: HUNTINGTON'S DISEASE
     Dosage: (25 MG TID ORAL), (12.5 MG TID ORAL)
     Route: 048
     Dates: end: 20110320
  2. XENAZINE [Suspect]
     Indication: HUNTINGTON'S DISEASE
     Dosage: (25 MG TID ORAL), (12.5 MG TID ORAL)
     Route: 048
     Dates: start: 20110321

REACTIONS (4)
  - MUSCULAR WEAKNESS [None]
  - FALL [None]
  - HEADACHE [None]
  - DISCOMFORT [None]
